FAERS Safety Report 12502344 (Version 2)
Quarter: 2016Q3

REPORT INFORMATION
  Report Type: Report from Study
  Country: AU (occurrence: AU)
  Receive Date: 20160627
  Receipt Date: 20160708
  Transmission Date: 20161109
  Serious: Yes (Life-Threatening, Hospitalization, Other)
  Sender: FDA-Public Use
  Company Number: AU-ABBVIE-16P-008-1658642-00

PATIENT
  Age: 59 Year
  Sex: Male
  Weight: 78.6 kg

DRUGS (2)
  1. RIBAVIRIN. [Suspect]
     Active Substance: RIBAVIRIN
     Indication: HEPATITIS C
     Dosage: THERAPY COMPLETED
     Route: 048
     Dates: start: 20150925, end: 20160311
  2. VIEKIRA PAK [Suspect]
     Active Substance: DASABUVIR\OMBITASVIR\PARITAPREVIR\RITONAVIR
     Indication: HEPATITIS C
     Dosage: 3 IN THE MORNING, 1 AT NIGHT; THERAPY COMPLETED
     Route: 048
     Dates: start: 20150925, end: 20160311

REACTIONS (12)
  - Oesophageal adenocarcinoma [Not Recovered/Not Resolved]
  - Gastritis [Unknown]
  - Hiatus hernia [Unknown]
  - Abdominal pain upper [Recovering/Resolving]
  - Inguinal hernia [Unknown]
  - Pancreatitis [Unknown]
  - Cholelithiasis [Unknown]
  - Hydronephrosis [Unknown]
  - Hypertension [Unknown]
  - Vomiting [Unknown]
  - Varices oesophageal [Unknown]
  - Splenomegaly [Unknown]

NARRATIVE: CASE EVENT DATE: 20160329
